FAERS Safety Report 13363837 (Version 2)
Quarter: 2017Q2

REPORT INFORMATION
  Report Type: Spontaneous
  Country: US (occurrence: US)
  Receive Date: 20170323
  Receipt Date: 20170413
  Transmission Date: 20170830
  Serious: No
  Sender: FDA-Public Use
  Company Number: US-PFIZER INC-2017120860

PATIENT

DRUGS (2)
  1. SUCCINYLCHOLINE CHLORIDE. [Suspect]
     Active Substance: SUCCINYLCHOLINE CHLORIDE
     Indication: ENDOTRACHEAL INTUBATION
     Dosage: UNKNOWN DOSE, SINGLE
     Route: 042
     Dates: start: 20170316, end: 20170316
  2. SUCCINYLCHOLINE CHLORIDE. [Suspect]
     Active Substance: SUCCINYLCHOLINE CHLORIDE
     Dosage: UNKNOWN DOSE, SECOND ADMINISTRATION
     Route: 042
     Dates: start: 20170316, end: 20170316

REACTIONS (3)
  - Drug ineffective [Unknown]
  - Incorrect product storage [Unknown]
  - Drug administration error [Unknown]

NARRATIVE: CASE EVENT DATE: 20170316
